FAERS Safety Report 18511233 (Version 2)
Quarter: 2021Q4

REPORT INFORMATION
  Report Type: Spontaneous
  Country: JP (occurrence: JP)
  Receive Date: 20201117
  Receipt Date: 20211010
  Transmission Date: 20220303
  Serious: Yes (Other)
  Sender: FDA-Public Use
  Company Number: JP-JNJFOC-20201118431

PATIENT
  Sex: Male

DRUGS (1)
  1. ZYTIGA [Suspect]
     Active Substance: ABIRATERONE ACETATE
     Indication: Prostate cancer metastatic
     Dosage: DOSE UNKNOWN
     Route: 048

REACTIONS (2)
  - Renal impairment [Recovered/Resolved]
  - Purpura [Unknown]
